FAERS Safety Report 12150600 (Version 1)
Quarter: 2016Q1

REPORT INFORMATION
  Report Type: Other
  Country: DE (occurrence: JP)
  Receive Date: 20160304
  Receipt Date: 20160304
  Transmission Date: 20160526
  Serious: Yes (Hospitalization)
  Sender: FDA-Public Use
  Company Number: JP-FRI-1000082939

PATIENT
  Age: 70 Year
  Sex: Male

DRUGS (9)
  1. MEMANTINE. [Suspect]
     Active Substance: MEMANTINE
     Dosage: 5 MG
  2. LORAZEPAM. [Concomitant]
     Active Substance: LORAZEPAM
     Indication: INSOMNIA
  3. MEMANTINE. [Suspect]
     Active Substance: MEMANTINE
  4. HALOPERIDOL. [Concomitant]
     Active Substance: HALOPERIDOL
     Indication: DELIRIUM
     Dosage: 1.5 MG
  5. OXYPERTINE [Concomitant]
     Active Substance: OXYPERTINE
     Indication: DELIRIUM
     Dosage: 20 MG
  6. MEMANTINE. [Suspect]
     Active Substance: MEMANTINE
     Dosage: GRADUALLY INCREASED DOSE
  7. HALOPERIDOL. [Concomitant]
     Active Substance: HALOPERIDOL
     Indication: INSOMNIA
     Dosage: 1.5 MG
  8. MEMANTINE. [Suspect]
     Active Substance: MEMANTINE
     Indication: DEMENTIA ALZHEIMER^S TYPE
     Dosage: 20 MG
  9. LORAZEPAM. [Concomitant]
     Active Substance: LORAZEPAM
     Indication: DELIRIUM
     Dosage: 3 MG

REACTIONS (1)
  - Electrocardiogram QT prolonged [Recovered/Resolved]
